FAERS Safety Report 5335980-3 (Version None)
Quarter: 2007Q2

REPORT INFORMATION
  Report Type: 
  Country: None (occurrence: None)
  Receive Date: 20070302
  Receipt Date: 20061106
  Transmission Date: 20071010
  Serious: Yes (Disabling)
  Sender: FDA-Public Use
  Company Number: 2450

PATIENT
  Age: 50 Year
  Sex: Female

DRUGS (3)
  1. TARGRETIN [Suspect]
     Indication: MYCOSIS FUNGOIDES
     Dosage: 450 MG DAILY PO
     Route: 048
     Dates: start: 20050321
  2. FENOFIBRATE [Concomitant]
  3. TACROLIMUS [Concomitant]

REACTIONS (5)
  - ARTHRALGIA [None]
  - FACE OEDEMA [None]
  - MUSCULAR WEAKNESS [None]
  - MYALGIA [None]
  - PHOTOSENSITIVITY REACTION [None]
